FAERS Safety Report 23625880 (Version 1)
Quarter: 2024Q1

REPORT INFORMATION
  Report Type: Spontaneous
  Country: NL (occurrence: None)
  Receive Date: 20240313
  Receipt Date: 20240313
  Transmission Date: 20240410
  Serious: Yes (Other)
  Sender: FDA-Public Use
  Company Number: 2024A054423

PATIENT
  Age: 81 Year
  Sex: Female
  Weight: 65 kg

DRUGS (1)
  1. DAPAGLIFLOZIN [Suspect]
     Active Substance: DAPAGLIFLOZIN
     Indication: Type 2 diabetes mellitus
     Dosage: 1 X PER DAY 1 TABLET
     Dates: start: 20230607, end: 20240104

REACTIONS (4)
  - Asthenia [Recovering/Resolving]
  - Balance disorder [Recovering/Resolving]
  - Hyponatraemia [Recovering/Resolving]
  - Dry mouth [Recovering/Resolving]
